FAERS Safety Report 7455216-7 (Version None)
Quarter: 2011Q2

REPORT INFORMATION
  Report Type: 
  Country: None (occurrence: None)
  Receive Date: 20110503
  Receipt Date: 20110419
  Transmission Date: 20111010
  Serious: Yes (Hospitalization)
  Sender: FDA-Public Use
  Company Number: FR-JNJFOC-20110500158

PATIENT
  Sex: Male

DRUGS (7)
  1. INIPOMP [Concomitant]
  2. SERESTA [Concomitant]
  3. AOTAL [Concomitant]
  4. GAVISCON(ALUMINIUM HYDROXIDE GEL, DRIED MAGNESIUM TRISILICATE) [Concomitant]
  5. EFFEXOR [Concomitant]
  6. ACETAMINOPHEN AND TRAMADOL HCL [Suspect]
     Indication: ARTHRALGIA
     Route: 048
  7. AVLOCARDYL [Concomitant]

REACTIONS (1)
  - DERMATITIS EXFOLIATIVE [None]
